FAERS Safety Report 10648447 (Version 13)
Quarter: 2015Q4

REPORT INFORMATION
  Report Type: Report from Study
  Country: NZ (occurrence: NZ)
  Receive Date: 20141212
  Receipt Date: 20151020
  Transmission Date: 20160304
  Serious: Yes (Other)
  Sender: FDA-Public Use
  Company Number: PHHY2014NZ161867

PATIENT
  Age: 44 Year
  Sex: Male

DRUGS (7)
  1. METAMUCIL [Concomitant]
     Active Substance: PLANTAGO SEED
     Indication: CONSTIPATION
     Dosage: 6 G, PRN
     Route: 065
     Dates: start: 20130819
  2. OLANZAPINE. [Concomitant]
     Active Substance: OLANZAPINE
     Indication: PRODUCT USED FOR UNKNOWN INDICATION
     Route: 065
  3. CLOZARIL [Suspect]
     Active Substance: CLOZAPINE
     Dosage: 500 MG, QHS
     Route: 048
     Dates: start: 201301
  4. CLOZARIL [Suspect]
     Active Substance: CLOZAPINE
     Indication: SCHIZOPHRENIA
     Dosage: UNK
     Route: 048
  5. CLOZARIL [Suspect]
     Active Substance: CLOZAPINE
     Dosage: 350 MG, QHS
     Route: 048
     Dates: start: 20130114
  6. CLOZARIL [Suspect]
     Active Substance: CLOZAPINE
     Route: 048
     Dates: start: 20130125
  7. CLOZARIL [Suspect]
     Active Substance: CLOZAPINE
     Dosage: 500 MG, QHS
     Route: 048
     Dates: start: 20130819

REACTIONS (10)
  - Paranoia [Unknown]
  - Agitation [Unknown]
  - Lymphoproliferative disorder [Unknown]
  - Derealisation [Unknown]
  - General physical health deterioration [Unknown]
  - Anosognosia [Unknown]
  - Delusion of grandeur [Unknown]
  - Monocyte count increased [Recovered/Resolved]
  - Negativism [Unknown]
  - Monocyte count increased [Unknown]

NARRATIVE: CASE EVENT DATE: 20130306
